FAERS Safety Report 8243159-0 (Version None)
Quarter: 2012Q1

REPORT INFORMATION
  Report Type: 
  Country: None (occurrence: None)
  Receive Date: 20120329
  Receipt Date: 20120319
  Transmission Date: 20120608
  Serious: Yes (Hospitalization, Other)
  Sender: FDA-Public Use
  Company Number: US-UCBSA-053703

PATIENT
  Age: 59 Year
  Sex: Female

DRUGS (3)
  1. LORTAB [Suspect]
  2. SOMA [Interacting]
  3. ATIVAN [Interacting]

REACTIONS (4)
  - CIRCULATORY COLLAPSE [None]
  - INCOHERENT [None]
  - OVERDOSE [None]
  - DRUG INTERACTION [None]
